FAERS Safety Report 19493223 (Version 2)
Quarter: 2021Q3

REPORT INFORMATION
  Report Type: Report from Study
  Country: FR (occurrence: FR)
  Receive Date: 20210705
  Receipt Date: 20210720
  Transmission Date: 20211014
  Serious: Yes (Disabling, Other)
  Sender: FDA-Public Use
  Company Number: FR-GILEAD-2021-0538067

PATIENT
  Age: 55 Year
  Sex: Male
  Weight: 73 kg

DRUGS (6)
  1. PEGINTERFERON ALFA?2A. [Suspect]
     Active Substance: PEGINTERFERON ALFA-2A
     Indication: HEPATITIS D
     Dosage: 180 MG, Q1WK
     Route: 058
     Dates: start: 20191212, end: 20201105
  2. LEVOTHYROXIN [Concomitant]
     Active Substance: LEVOTHYROXINE
  3. VIREAD [Concomitant]
     Active Substance: TENOFOVIR DISOPROXIL FUMARATE
  4. INIPOMP [Concomitant]
     Active Substance: PANTOPRAZOLE SODIUM
  5. DOLIPRANE [Concomitant]
     Active Substance: ACETAMINOPHEN
  6. BULEVIRTIDE [Suspect]
     Active Substance: BULEVIRTIDE
     Indication: HEPATITIS D
     Dosage: 10 MG, QD
     Route: 058

REACTIONS (1)
  - Vitreous detachment [Not Recovered/Not Resolved]

NARRATIVE: CASE EVENT DATE: 20210412
